FAERS Safety Report 12843236 (Version 1)
Quarter: 2016Q4

REPORT INFORMATION
  Report Type: Spontaneous
  Country: US (occurrence: US)
  Receive Date: 20161013
  Receipt Date: 20161013
  Transmission Date: 20170207
  Serious: Yes (Other)
  Sender: FDA-Public Use
  Company Number: US-GLAXOSMITHKLINE-US2016149468

PATIENT
  Age: 64 Year
  Sex: Female

DRUGS (4)
  1. BREO ELLIPTA [Suspect]
     Active Substance: FLUTICASONE FUROATE\VILANTEROL TRIFENATATE
     Indication: WHEEZING
     Dosage: 1 PUFF(S), 1D
     Dates: start: 20161008
  2. GLUCOTROL [Concomitant]
     Active Substance: GLIPIZIDE
  3. ALBUTEROL INHALER [Concomitant]
     Active Substance: ALBUTEROL
  4. VALSARTAN. [Concomitant]
     Active Substance: VALSARTAN

REACTIONS (9)
  - Oropharyngeal pain [Not Recovered/Not Resolved]
  - Pruritus generalised [Recovered/Resolved]
  - Tongue pruritus [Not Recovered/Not Resolved]
  - Throat tightness [Recovered/Resolved]
  - Swelling face [Not Recovered/Not Resolved]
  - Headache [Not Recovered/Not Resolved]
  - Blood pressure increased [Recovered/Resolved]
  - Angina pectoris [Recovered/Resolved]
  - Diarrhoea [Recovered/Resolved]

NARRATIVE: CASE EVENT DATE: 20161008
